FAERS Safety Report 8129042-X (Version None)
Quarter: 2012Q1

REPORT INFORMATION
  Report Type: 
  Country: None (occurrence: None)
  Receive Date: 20120210
  Receipt Date: 20110823
  Transmission Date: 20120608
  Serious: No
  Sender: FDA-Public Use
  Company Number: US-BRISTOL-MYERS SQUIBB COMPANY-15975097

PATIENT
  Age: 52 Year
  Sex: Female

DRUGS (2)
  1. MONTELUKAST [Suspect]
  2. ORENCIA [Suspect]
     Indication: RHEUMATOID ARTHRITIS
     Route: 042
     Dates: start: 20100811

REACTIONS (3)
  - FATIGUE [None]
  - SINUSITIS [None]
  - CONDITION AGGRAVATED [None]
